FAERS Safety Report 4938483-0 (Version None)
Quarter: 2006Q1

REPORT INFORMATION
  Report Type: 
  Country: None (occurrence: None)
  Receive Date: 20060309
  Receipt Date: 20060227
  Transmission Date: 20060701
  Serious: Yes (Other)
  Sender: FDA-Public Use
  Company Number: BG-BRISTOL-MYERS SQUIBB COMPANY-13296397

PATIENT
  Age: 19 Year
  Sex: Male

DRUGS (1)
  1. LYSODREN [Suspect]
     Indication: ADRENAL CARCINOMA
     Dates: start: 20051201

REACTIONS (4)
  - DISEASE PROGRESSION [None]
  - MENTAL DISORDER [None]
  - RASH [None]
  - URINE CORTISOL/CREATININE RATIO INCREASED [None]
